FAERS Safety Report 25196341 (Version 2)
Quarter: 2025Q2

REPORT INFORMATION
  Report Type: Spontaneous
  Country: US (occurrence: US)
  Receive Date: 20250415
  Receipt Date: 20250424
  Transmission Date: 20250716
  Serious: Yes (Other)
  Sender: MERCK SHARP & DOHME LLC
  Company Number: US-009507513-2271134

PATIENT
  Sex: Male
  Weight: 83.5 kg

DRUGS (7)
  1. WELIREG [Suspect]
     Active Substance: BELZUTIFAN
     Indication: Haemangioblastoma
     Dosage: 120 MG, QD
     Route: 048
     Dates: start: 20240303
  2. WELIREG [Suspect]
     Active Substance: BELZUTIFAN
     Indication: Haemangioblastoma
     Dosage: 40 MG, 2 TIMES PER DAY
     Route: 048
  3. NEURONTIN [Concomitant]
     Active Substance: GABAPENTIN
     Route: 048
  4. vitamin D+ [Concomitant]
  5. VITAMIN D2 [Concomitant]
     Active Substance: ERGOCALCIFEROL
     Dosage: 50 UG, ONCE A WWEK
     Route: 048
  6. NORVASC [Concomitant]
     Active Substance: AMLODIPINE BESYLATE
     Dosage: 2.5 MG. QD, QUANITY: 15 TABLETS.
     Route: 048
  7. LIPITOR [Concomitant]
     Active Substance: ATORVASTATIN CALCIUM
     Indication: Blood cholesterol increased
     Dosage: 40 MG, QD, QUANTITY: 90 TABLTES
     Route: 048

REACTIONS (17)
  - Angina pectoris [Recovered/Resolved]
  - Weight decreased [Unknown]
  - Anaemia [Not Recovered/Not Resolved]
  - Fatigue [Unknown]
  - Visual impairment [Unknown]
  - Swelling [Unknown]
  - Illness [Unknown]
  - Back pain [Recovered/Resolved]
  - Headache [Unknown]
  - Cognitive disorder [Unknown]
  - Palpitations [Recovered/Resolved]
  - Memory impairment [Unknown]
  - Periorbital swelling [Unknown]
  - Neuralgia [Unknown]
  - Deafness [Unknown]
  - Dizziness [Unknown]
  - Balance disorder [Unknown]

NARRATIVE: CASE EVENT DATE: 20240101
